FAERS Safety Report 19699087 (Version 2)
Quarter: 2021Q3

REPORT INFORMATION
  Report Type: Spontaneous
  Country: JP (occurrence: JP)
  Receive Date: 20210813
  Receipt Date: 20210824
  Transmission Date: 20211014
  Serious: Yes (Life-Threatening, Hospitalization)
  Sender: FDA-Public Use
  Company Number: JP-PFIZER INC-202100984277

PATIENT
  Sex: Male

DRUGS (1)
  1. ZITHROMAC [Suspect]
     Active Substance: AZITHROMYCIN DIHYDRATE
     Dosage: UNK
     Route: 048

REACTIONS (3)
  - Hypersensitivity [Recovered/Resolved]
  - Sensory disturbance [Recovered/Resolved]
  - Muscular weakness [Recovered/Resolved]
